FAERS Safety Report 7458238-5 (Version None)
Quarter: 2011Q2

REPORT INFORMATION
  Report Type: 
  Country: None (occurrence: None)
  Receive Date: 20110504
  Receipt Date: 20110427
  Transmission Date: 20111010
  Serious: Yes (Hospitalization, Disabling)
  Sender: FDA-Public Use
  Company Number: US-MERCK-1102USA00529

PATIENT
  Age: 73 Year
  Sex: Female
  Weight: 62 kg

DRUGS (5)
  1. FOSAMAX [Suspect]
     Indication: OSTEOPOROSIS PROPHYLAXIS
     Route: 048
     Dates: start: 19960101
  2. ALENDRONATE SODIUM [Suspect]
     Route: 048
     Dates: start: 20090420, end: 20100209
  3. AZOR (ALPRAZOLAM) [Concomitant]
     Indication: HYPERTENSION
     Route: 065
     Dates: start: 19810101
  4. FOSAMAX [Suspect]
     Indication: OSTEOPENIA
     Route: 048
     Dates: start: 19960101
  5. FOSAMAX [Suspect]
     Route: 048
     Dates: start: 20100209

REACTIONS (25)
  - ELECTROCARDIOGRAM POOR R-WAVE PROGRESSION [None]
  - WRIST FRACTURE [None]
  - POST PROCEDURAL CONSTIPATION [None]
  - WHITE BLOOD CELL COUNT INCREASED [None]
  - BREAST CYST [None]
  - HYPERCHOLESTEROLAEMIA [None]
  - FALL [None]
  - CAROTID ARTERY STENOSIS [None]
  - BONE DENSITY DECREASED [None]
  - STRESS FRACTURE [None]
  - THROMBOCYTOPENIA [None]
  - SINUS TACHYCARDIA [None]
  - BURSITIS [None]
  - CARDIAC MURMUR [None]
  - OSTEOPOROSIS [None]
  - BLOOD CREATININE INCREASED [None]
  - COLONIC POLYP [None]
  - CONTUSION [None]
  - URINARY RETENTION [None]
  - HYPERTENSION [None]
  - FATIGUE [None]
  - FEMUR FRACTURE [None]
  - HERPES ZOSTER [None]
  - RENAL FAILURE [None]
  - ANAEMIA POSTOPERATIVE [None]
